FAERS Safety Report 7953675-4 (Version None)
Quarter: 2011Q4

REPORT INFORMATION
  Report Type: 
  Country: None (occurrence: None)
  Receive Date: 20111202
  Receipt Date: 20111118
  Transmission Date: 20120403
  Serious: Yes (Hospitalization, Other)
  Sender: FDA-Public Use
  Company Number: JP-JNJFOC-20090803443

PATIENT
  Sex: Male
  Weight: 20 kg

DRUGS (4)
  1. LAMICTAL [Concomitant]
     Indication: EPILEPSY
     Route: 048
     Dates: start: 20090105
  2. TOPIRAMATE [Suspect]
     Indication: EPILEPSY
     Dosage: 70 MG, 2 TIMES A DAY
     Route: 048
     Dates: start: 20071210, end: 20090607
  3. POTASSIUM BROMIDE [Concomitant]
     Indication: EPILEPSY
     Route: 048
     Dates: start: 20051130, end: 20090604
  4. VALPROIC ACID [Concomitant]
     Indication: EPILEPSY
     Route: 048
     Dates: start: 20040827

REACTIONS (4)
  - DEHYDRATION [None]
  - HYPERCALCAEMIA [None]
  - CALCULUS URINARY [None]
  - PYELONEPHRITIS ACUTE [None]
